FAERS Safety Report 4435892-3 (Version None)
Quarter: 2004Q3

REPORT INFORMATION
  Report Type: 
  Country: None (occurrence: None)
  Receive Date: 20040726
  Receipt Date: 20040415
  Transmission Date: 20050211
  Serious: No
  Sender: FDA-Public Use
  Company Number: USA031153186

PATIENT
  Age: 78 Year
  Sex: Female

DRUGS (1)
  1. FORTEO [Suspect]
     Dates: start: 20031111

REACTIONS (5)
  - HYPOACUSIS [None]
  - OTITIS EXTERNA [None]
  - OTOSCLEROSIS [None]
  - TINNITUS [None]
  - TYMPANOSCLEROSIS [None]
